FAERS Safety Report 9182341 (Version 2)
Quarter: 2013Q3

REPORT INFORMATION
  Report Type: Report from Study
  Country: JP (occurrence: JP)
  Receive Date: 20121030
  Receipt Date: 20130723
  Transmission Date: 20140515
  Serious: Yes (Other)
  Sender: FDA-Public Use
  Company Number: JP-VERTEX PHARMACEUTICAL INC.-2012-023676

PATIENT
  Age: 62 Year
  Sex: Male

DRUGS (8)
  1. VX-950 (TELAPREVIR) [Suspect]
     Indication: CHRONIC HEPATITIS C
     Dosage: 1500 MG, QD
     Route: 048
     Dates: start: 20120903
  2. PEGINTERFERON ALFA-2B [Suspect]
     Indication: CHRONIC HEPATITIS C
     Dosage: 1.33 ?G/KG, QW
     Route: 058
     Dates: start: 20120903, end: 20120917
  3. PEGINTERFERON ALFA-2B [Suspect]
     Dosage: 0.67 ?G/KG, QW
     Route: 058
     Dates: start: 20120918
  4. RIBAVIRIN [Concomitant]
     Indication: HEPATITIS C
     Dosage: 400 MG, QD
     Route: 048
     Dates: start: 20120903
  5. MUCOSTA [Concomitant]
     Dosage: 200 MG, QD
     Route: 048
  6. TAKEPRON [Concomitant]
     Dosage: 15 MG, QD
     Route: 048
  7. FEBURIC [Concomitant]
     Dosage: 10 MG, QD
     Route: 048
     Dates: start: 20120928
  8. GASTROM BOEHRINGER [Concomitant]
     Dosage: 3 G, QD
     Route: 048

REACTIONS (1)
  - White blood cell count decreased [Recovered/Resolved]
